FAERS Safety Report 5121222-0 (Version None)
Quarter: 2006Q4

REPORT INFORMATION
  Report Type: 
  Country: None (occurrence: None)
  Receive Date: 20061002
  Receipt Date: 20060918
  Transmission Date: 20070319
  Serious: Yes (Other)
  Sender: FDA-Public Use
  Company Number: 008657

PATIENT
  Age: 23 Year
  Sex: Female

DRUGS (1)
  1. CLARAVIS [Suspect]
     Dosage: 40 MG, TID, ORAL
     Route: 048
     Dates: start: 20051103, end: 20060405

REACTIONS (1)
  - DRUG EXPOSURE BEFORE PREGNANCY [None]
